FAERS Safety Report 4666794-5 (Version None)
Quarter: 2005Q2

REPORT INFORMATION
  Report Type: 
  Country: None (occurrence: None)
  Receive Date: 20050519
  Receipt Date: 20050511
  Transmission Date: 20051028
  Serious: Yes (Hospitalization, Disabling, Other)
  Sender: FDA-Public Use
  Company Number: GB-MERCK-0505GBR00095

PATIENT
  Age: 69 Year
  Sex: Male
  Weight: 68 kg

DRUGS (7)
  1. FOSAMAX [Suspect]
     Indication: OSTEOPOROSIS
     Route: 048
     Dates: end: 20050315
  2. MELOXICAM [Suspect]
     Indication: ARTHRITIS
     Route: 048
     Dates: start: 20050315, end: 20050401
  3. CALCITRIOL [Concomitant]
     Indication: ARTHRITIS
     Route: 065
  4. SALMETEROL [Concomitant]
     Indication: ASTHMA
     Route: 065
  5. ALBUTEROL [Concomitant]
     Indication: ASTHMA
     Route: 065
  6. BECLOMETHASONE DIPROPIONATE [Concomitant]
     Indication: ASTHMA
     Route: 065
  7. RALOXIFENE HYDROCHLORIDE [Concomitant]
     Indication: ARTHRITIS
     Route: 065

REACTIONS (3)
  - GASTRITIS [None]
  - OESOPHAGITIS [None]
  - UPPER GASTROINTESTINAL HAEMORRHAGE [None]
